FAERS Safety Report 23209962 (Version 1)
Quarter: 2023Q4

REPORT INFORMATION
  Report Type: Spontaneous
  Country: AU (occurrence: AU)
  Receive Date: 20231121
  Receipt Date: 20231121
  Transmission Date: 20240110
  Serious: Yes (Death, Hospitalization)
  Sender: FDA-Public Use
  Company Number: AU-STRIDES ARCOLAB LIMITED-2023SP017226

PATIENT
  Age: 89 Year
  Sex: Male

DRUGS (1)
  1. PREDNISOLONE [Suspect]
     Active Substance: PREDNISOLONE
     Indication: Orbital myositis
     Dosage: 70 MILLIGRAM
     Route: 048

REACTIONS (3)
  - Death [Fatal]
  - Herpes zoster meningoencephalitis [Unknown]
  - Therapy non-responder [Unknown]
